FAERS Safety Report 4734754-1 (Version None)
Quarter: 2005Q3

REPORT INFORMATION
  Report Type: 
  Country: None (occurrence: None)
  Receive Date: 20050804
  Receipt Date: 20050622
  Transmission Date: 20060218
  Serious: Yes (Disabling)
  Sender: FDA-Public Use
  Company Number: JP-GLAXOSMITHKLINE-B0385504A

PATIENT
  Age: 70 Year
  Sex: Female

DRUGS (7)
  1. SEREVENT [Suspect]
     Indication: ASTHMA
     Dosage: 50MCG PER DAY
     Route: 055
     Dates: start: 20050620, end: 20050620
  2. PEMIROLAST POTASSIUM [Concomitant]
     Indication: ASTHMA
     Dosage: 2TAB PER DAY
     Route: 048
     Dates: start: 20030201
  3. UNIPHYL [Concomitant]
     Indication: ASTHMA
     Dosage: 2UNIT PER DAY
     Route: 048
     Dates: start: 20050201
  4. CRAVIT [Concomitant]
     Indication: CYSTITIS
     Dosage: 3UNIT PER DAY
     Route: 048
  5. ZESULAN [Concomitant]
     Indication: RHINITIS
     Dosage: 3UNIT PER DAY
     Route: 048
     Dates: start: 20050617, end: 20050705
  6. MEDICON [Concomitant]
     Indication: COUGH
     Dosage: 6UNIT PER DAY
     Route: 048
     Dates: start: 20050617, end: 20050705
  7. LIPITOR [Concomitant]
     Route: 048

REACTIONS (7)
  - ASTHENIA [None]
  - COLD SWEAT [None]
  - DIZZINESS [None]
  - ILL-DEFINED DISORDER [None]
  - NAUSEA [None]
  - TREMOR [None]
  - VOMITING [None]
